FAERS Safety Report 18962767 (Version 1)
Quarter: 2021Q1

REPORT INFORMATION
  Report Type: Spontaneous
  Country: US (occurrence: US)
  Receive Date: 20210302
  Receipt Date: 20210302
  Transmission Date: 20210420
  Serious: Yes (Hospitalization)
  Sender: FDA-Public Use
  Company Number: None

PATIENT
  Age: 72 Year
  Sex: Female

DRUGS (14)
  1. ARMOUR THYROID [Concomitant]
     Active Substance: THYROID, PORCINE
  2. ASPIRIN. [Suspect]
     Active Substance: ASPIRIN
  3. AZO PAIN REL [Concomitant]
  4. TUMERIC [Concomitant]
     Active Substance: HERBALS\TURMERIC
  5. REPATHA [Suspect]
     Active Substance: EVOLOCUMAB
     Indication: HYPERLIPIDAEMIA
     Dosage: OTHER FREQUENCY:Q2W ;?
     Route: 058
     Dates: start: 20200613
  6. PROTONIX [Concomitant]
     Active Substance: PANTOPRAZOLE SODIUM
  7. VITAMIN C [Concomitant]
     Active Substance: ASCORBIC ACID
  8. VITAMIN D [Concomitant]
     Active Substance: VITAMIN D NOS
  9. ZETIA [Concomitant]
     Active Substance: EZETIMIBE
  10. ZOLPIDEM [Concomitant]
     Active Substance: ZOLPIDEM TARTRATE
  11. LIVALO [Concomitant]
     Active Substance: PITAVASTATIN CALCIUM
  12. PROBIOTIC [Concomitant]
     Active Substance: PROBIOTICS NOS
  13. MAGOX [Concomitant]
  14. CALCIUM [Concomitant]
     Active Substance: CALCIUM

REACTIONS (2)
  - Back pain [None]
  - Aortic aneurysm repair [None]

NARRATIVE: CASE EVENT DATE: 202102
